FAERS Safety Report 9334157 (Version 1)
Quarter: 2013Q2

REPORT INFORMATION
  Report Type: Spontaneous
  Country: GB (occurrence: None)
  Receive Date: 20130604
  Receipt Date: 20130604
  Transmission Date: 20140414
  Serious: Yes (Other)
  Sender: FDA-Public Use
  Company Number: GER/UKI/13/0029770

PATIENT
  Age: 64 Year
  Sex: Female
  Weight: 76 kg

DRUGS (9)
  1. ATORVASTATIN (ATORVASTATIN) [Suspect]
     Indication: PRODUCT USED FOR UNKNOWN INDICATION
  2. AMLODIPINE (AMLODIPINE) [Concomitant]
  3. ATORVASTATIN (ATORVASTATIN) [Concomitant]
  4. BENDROFLUEETHIAZIDE (BENDROFLUMETHIAZIDE) [Concomitant]
  5. JANUVIA (SITAGLIPTIN PHOSPHATE) [Concomitant]
  6. METFORMIN (METFORMIN) [Concomitant]
  7. IRKUSTAT (ORLISTAT) [Concomitant]
  8. PANTOPRAZOLE (PANTOPRAZOLE) [Concomitant]
  9. TRAMACET (ULTRACET) [Concomitant]

REACTIONS (11)
  - Cough [None]
  - Product taste abnormal [None]
  - Local swelling [None]
  - Muscle tightness [None]
  - Swollen tongue [None]
  - Pharyngeal oedema [None]
  - Oral pruritus [None]
  - Malaise [None]
  - Product quality issue [None]
  - Product substitution issue [None]
  - Product size issue [None]
